APPROVED DRUG PRODUCT: PREGABALIN
Active Ingredient: PREGABALIN
Strength: 225MG
Dosage Form/Route: CAPSULE;ORAL
Application: A091222 | Product #007 | TE Code: AB
Applicant: PHARMOBEDIENT CONSULTING LLC
Approved: Feb 21, 2025 | RLD: No | RS: No | Type: RX